FAERS Safety Report 9891809 (Version 4)
Quarter: 2014Q2

REPORT INFORMATION
  Report Type: Spontaneous
  Country: US (occurrence: None)
  Receive Date: 20140210
  Receipt Date: 20140519
  Transmission Date: 20141212
  Serious: Yes (Hospitalization)
  Sender: FDA-Public Use
  Company Number: AUR-APL-2014-01366

PATIENT
  Age: 55 Year
  Sex: Female
  Weight: 83.3 kg

DRUGS (25)
  1. HYDROCHLOROTHIAZIDE [Suspect]
     Indication: HYPERTENSION
     Route: 048
     Dates: start: 2011, end: 20130915
  2. LASIX (FUROSEMIDE) [Suspect]
     Indication: PRODUCT USED FOR UNKNOWN INDICATION
     Dates: start: 20130904, end: 20130915
  3. NEXIUM (ESOMEPRAZOLE) [Concomitant]
  4. GABAPENTIN (GABAPENTIN) [Concomitant]
  5. LISINOPRIL (LISINOPRIL) [Concomitant]
  6. PROZAC (FLUOXETINE HYDROCHLORIDE) [Concomitant]
  7. VITAMIN D (ERGOCALCIFEROL) [Concomitant]
  8. LANTUS (INSULIN GLARGINE) [Concomitant]
  9. HYDROCODONE (HYDROCODONE) [Concomitant]
  10. ALBUTEROL (SALBUTAMOL) [Concomitant]
  11. METFORMIN (METFORMIN) [Concomitant]
  12. BENTYL (DICYLOVERINE HYDROCHLORIDE) [Concomitant]
  13. INSULIN (INSULIN) [Concomitant]
  14. BACTRIM DS (BACTRIM) [Concomitant]
  15. REGLAN (METOCLOPRAMIDE) [Concomitant]
  16. TRAMADOL (TRAMADOL) [Concomitant]
  17. PYRIDIUM (PHENAZOPYRIDINE HYDROCHLORIDE) [Concomitant]
  18. ROCEPHIN (CEFTRIAXONE SODIUM) [Concomitant]
  19. LOVENOX (ENOXAPARIN SODIUM) [Concomitant]
  20. NOVOLIN R (INSULIN HUMAN) [Concomitant]
  21. BACLOFEN (BACLOFEN) [Concomitant]
  22. VITAMIN B (VITAMIN B COMPLEX) [Concomitant]
  23. ACETAMINOPHEN (PARACETAMOL) [Concomitant]
  24. ERYTHROMYCIN (ERYTHROMYCIN) [Concomitant]
  25. PHENERGAN (PROMETHAZINE HYDROCHLORIDE) [Concomitant]

REACTIONS (23)
  - Joint crepitation [None]
  - Joint range of motion decreased [None]
  - Foot deformity [None]
  - Hyporeflexia [None]
  - Gait disturbance [None]
  - Urinary tract infection [None]
  - Diabetic ketoacidosis [None]
  - Pyelonephritis [None]
  - Nephrolithiasis [None]
  - Ankle fracture [None]
  - Femur fracture [None]
  - Spinal compression fracture [None]
  - Metabolic acidosis [None]
  - Intestinal ischaemia [None]
  - Perirenal haematoma [None]
  - Hypokalaemia [None]
  - Oxygen saturation decreased [None]
  - Ligament injury [None]
  - Spinal column injury [None]
  - Post concussion syndrome [None]
  - Leukocytosis [None]
  - Wound dehiscence [None]
  - Localised intraabdominal fluid collection [None]
